FAERS Safety Report 4828146-4 (Version None)
Quarter: 2005Q4

REPORT INFORMATION
  Report Type: 
  Country: None (occurrence: None)
  Receive Date: 20051110
  Receipt Date: 20051103
  Transmission Date: 20060501
  Serious: Yes (Hospitalization, Other)
  Sender: FDA-Public Use
  Company Number: HQWYE384303NOV05

PATIENT
  Age: 45 Year
  Sex: Male

DRUGS (3)
  1. TAZOCILLINE (PIPERACILLIN/TAZOBACTAM, INJECTION) [Suspect]
     Indication: ABDOMINAL WALL ABSCESS
  2. TAZOCILLINE (PIPERACILLIN/TAZOBACTAM, INJECTION) [Suspect]
     Indication: SEPSIS
  3. CLINDAMYCIN (CLINDAMYCIN) [Concomitant]

REACTIONS (6)
  - ARTHRITIS REACTIVE [None]
  - BACTEROIDES INFECTION [None]
  - CLOSTRIDIUM COLITIS [None]
  - MONARTHRITIS [None]
  - MONOPARESIS [None]
  - REITER'S SYNDROME [None]
